FAERS Safety Report 8504039-6 (Version None)
Quarter: 2012Q3

REPORT INFORMATION
  Report Type: 
  Country: None (occurrence: None)
  Receive Date: 20120711
  Receipt Date: 20120704
  Transmission Date: 20120928
  Serious: Yes (Hospitalization)
  Sender: FDA-Public Use
  Company Number: CH-ELI_LILLY_AND_COMPANY-CH201207001971

PATIENT
  Sex: Male
  Weight: 75 kg

DRUGS (3)
  1. EFFIENT [Suspect]
     Indication: PERCUTANEOUS CORONARY INTERVENTION
     Dosage: 60 MG, QD
     Route: 048
     Dates: start: 20110819, end: 20110819
  2. EFFIENT [Suspect]
     Dosage: 10 MG, QD
     Route: 048
     Dates: start: 20110820
  3. ASPIRIN [Concomitant]

REACTIONS (2)
  - IN-STENT CORONARY ARTERY RESTENOSIS [None]
  - ANGINA PECTORIS [None]
